FAERS Safety Report 8829797 (Version 2)
Quarter: 2014Q3

REPORT INFORMATION
  Report Type: Report from Study
  Country: US (occurrence: US)
  Receive Date: 20121008
  Receipt Date: 20140915
  Transmission Date: 20150326
  Serious: Yes (Hospitalization, Other)
  Sender: FDA-Public Use
  Company Number: US-ROCHE-1134112

PATIENT
  Sex: Male
  Weight: 104.42 kg

DRUGS (3)
  1. FOLIC ACID. [Concomitant]
     Active Substance: FOLIC ACID
  2. RITUXAN [Suspect]
     Active Substance: RITUXIMAB
     Indication: CHRONIC LYMPHOCYTIC LEUKAEMIA
     Route: 065
     Dates: start: 19980602
  3. PEPCID [Concomitant]
     Active Substance: FAMOTIDINE

REACTIONS (5)
  - Autoimmune haemolytic anaemia [Recovering/Resolving]
  - Dyspnoea exertional [Unknown]
  - Jaundice [Unknown]
  - Fatigue [Unknown]
  - Malaise [Unknown]
